FAERS Safety Report 7152786-3 (Version None)
Quarter: 2010Q4

REPORT INFORMATION
  Report Type: 
  Country: None (occurrence: None)
  Receive Date: 20101208
  Receipt Date: 20101208
  Transmission Date: 20110411
  Serious: No
  Sender: FDA-Public Use
  Company Number: None

PATIENT
  Sex: Male
  Weight: 53 kg

DRUGS (6)
  1. MERCAPTOPURINE [Suspect]
     Dosage: 1575 MG
     Dates: end: 20101202
  2. PEG-L ASPARAGINASE (PEGASPARGASE, ONCOSPAR) [Suspect]
     Dosage: 3725 IU
     Dates: end: 20101110
  3. METHOTREXATE [Suspect]
     Dosage: 60 MG
     Dates: end: 20101117
  4. VINCRISTINE SULFATE [Suspect]
     Dosage: 4 MG
     Dates: end: 20101117
  5. CYCLOPHOSPHAMIDE [Suspect]
     Dosage: 2920 MG
     Dates: end: 20101126
  6. CYTARABINE [Suspect]
     Dosage: 1430 MG
     Dates: end: 20101206

REACTIONS (1)
  - HYPERBILIRUBINAEMIA [None]
